FAERS Safety Report 22094059 (Version 2)
Quarter: 2024Q4

REPORT INFORMATION
  Report Type: Report from Study
  Country: AU (occurrence: AU)
  Receive Date: 20230314
  Receipt Date: 20241010
  Transmission Date: 20250114
  Serious: Yes (Death)
  Sender: BIOVITRUM
  Company Number: AU-BIOVITRUM-2023-AU-006454

PATIENT
  Age: 74 Year

DRUGS (1)
  1. DOPTELET [Suspect]
     Active Substance: AVATROMBOPAG MALEATE
     Indication: Aplastic anaemia
     Dates: start: 20210721, end: 20220706

REACTIONS (1)
  - Myelodysplastic syndrome [Fatal]

NARRATIVE: CASE EVENT DATE: 20221206
